FAERS Safety Report 7706688-1 (Version None)
Quarter: 2011Q3

REPORT INFORMATION
  Report Type: 
  Country: None (occurrence: None)
  Receive Date: 20110824
  Receipt Date: 20110816
  Transmission Date: 20111222
  Serious: Yes (Other)
  Sender: FDA-Public Use
  Company Number: US-JNJFOC-20110807838

PATIENT
  Sex: Female
  Weight: 97.98 kg

DRUGS (4)
  1. REMICADE [Suspect]
     Indication: RHEUMATOID ARTHRITIS
     Dosage: DOSE: 3 VIALS
     Route: 042
     Dates: start: 20090101
  2. REMICADE [Suspect]
     Dosage: DOSE: 3 VIALS
     Route: 042
     Dates: start: 20020101, end: 20080101
  3. METHOTREXATE [Concomitant]
     Indication: RHEUMATOID ARTHRITIS
     Dates: start: 20010101
  4. PREDNISONE [Concomitant]
     Indication: RHEUMATOID ARTHRITIS

REACTIONS (5)
  - THERAPEUTIC RESPONSE DECREASED [None]
  - PAIN [None]
  - ARTHRITIS [None]
  - OEDEMA PERIPHERAL [None]
  - BEDRIDDEN [None]
